FAERS Safety Report 15747315 (Version 1)
Quarter: 2018Q4

REPORT INFORMATION
  Report Type: Spontaneous
  Country: US (occurrence: US)
  Receive Date: 20181220
  Receipt Date: 20181220
  Transmission Date: 20190205
  Serious: No
  Sender: FDA-Public Use
  Company Number: US-AVADEL SPECIALTY PHARMACEUTICALS, LLC-2018AVA00499

PATIENT
  Age: 65 Year
  Sex: Male
  Weight: 89.8 kg

DRUGS (1)
  1. NOCTIVA [Suspect]
     Active Substance: DESMOPRESSIN ACETATE
     Dosage: 0.83 ?G, 1X/DAY 30 MINUTES BEFORE BEDTIME
     Route: 045
     Dates: start: 201811, end: 20181119

REACTIONS (3)
  - Rhinorrhoea [Unknown]
  - Insomnia [Unknown]
  - Nasal congestion [Unknown]

NARRATIVE: CASE EVENT DATE: 201811
